FAERS Safety Report 18547650 (Version 5)
Quarter: 2021Q1

REPORT INFORMATION
  Report Type: Spontaneous
  Country: FR (occurrence: FR)
  Receive Date: 20201126
  Receipt Date: 20210114
  Transmission Date: 20210419
  Serious: Yes (Death)
  Sender: FDA-Public Use
  Company Number: FR-ROCHE-2718972

PATIENT
  Age: 37 Year
  Sex: Male
  Weight: 87 kg

DRUGS (7)
  1. ZOPICLONE [Suspect]
     Active Substance: ZOPICLONE
     Indication: INSOMNIA
     Dosage: 7.5 MILLIGRAM, QD
     Route: 048
     Dates: start: 20201030, end: 20201102
  2. MIANSERINE HCL [Suspect]
     Active Substance: MIANSERIN HYDROCHLORIDE
     Indication: DEPRESSION
     Dosage: 60 MILLIGRAM, QD
     Route: 048
     Dates: start: 2019, end: 20201102
  3. SERTRALINE HYDROCHLORIDE. [Suspect]
     Active Substance: SERTRALINE HYDROCHLORIDE
     Indication: DEPRESSION
     Dosage: 100 MILLIGRAM, QD
     Route: 048
     Dates: start: 2019, end: 20201102
  4. PANTOPRAZOLE [Suspect]
     Active Substance: PANTOPRAZOLE
     Indication: GASTROOESOPHAGEAL REFLUX DISEASE
     Dosage: 20 MILLIGRAM, QD
     Route: 048
     Dates: start: 20201028, end: 20201102
  5. DIAZEPAM. [Suspect]
     Active Substance: DIAZEPAM
     Indication: ALCOHOL DETOXIFICATION
     Dosage: 1 DF, AS NEEDED
     Route: 048
     Dates: start: 20201028, end: 20201102
  6. SERESTA [Suspect]
     Active Substance: OXAZEPAM
     Indication: ALCOHOL DETOXIFICATION
     Route: 048
     Dates: start: 2019, end: 20201102
  7. METHADONE [Suspect]
     Active Substance: METHADONE HYDROCHLORIDE
     Indication: DRUG DEPENDENCE
     Dosage: UNK
     Route: 048
     Dates: start: 2020, end: 20201102

REACTIONS (2)
  - Cardio-respiratory arrest [Fatal]
  - Coma [Fatal]

NARRATIVE: CASE EVENT DATE: 20201102
